FAERS Safety Report 24558857 (Version 3)
Quarter: 2024Q4

REPORT INFORMATION
  Report Type: Report from Study
  Country: US (occurrence: US)
  Receive Date: 20241029
  Receipt Date: 20241125
  Transmission Date: 20250115
  Serious: Yes (Hospitalization)
  Sender: ROCHE
  Company Number: US-ROCHE-10000112494

PATIENT
  Age: 56 Year
  Sex: Female

DRUGS (1)
  1. OCREVUS [Suspect]
     Active Substance: OCRELIZUMAB
     Indication: Multiple sclerosis
     Route: 042
     Dates: end: 202404

REACTIONS (6)
  - Pneumonia [Recovered/Resolved]
  - Chest discomfort [Not Recovered/Not Resolved]
  - Sputum increased [Not Recovered/Not Resolved]
  - Body temperature increased [Recovered/Resolved]
  - Skin discolouration [Recovered/Resolved]
  - Interstitial lung disease [Not Recovered/Not Resolved]

NARRATIVE: CASE EVENT DATE: 20240411
